FAERS Safety Report 8086030-X (Version None)
Quarter: 2012Q1

REPORT INFORMATION
  Report Type: 
  Country: None (occurrence: None)
  Receive Date: 20120128
  Receipt Date: 20110608
  Transmission Date: 20120608
  Serious: No
  Sender: FDA-Public Use
  Company Number: US-ABBOTT-11P-163-0731558-00

PATIENT
  Sex: Male
  Weight: 75.818 kg

DRUGS (10)
  1. ENTOCORT EC [Concomitant]
     Indication: CROHN'S DISEASE
  2. CALCIUM CARBONATE [Concomitant]
     Indication: PRODUCT USED FOR UNKNOWN INDICATION
  3. FISH OIL [Concomitant]
     Indication: BLOOD TRIGLYCERIDES ABNORMAL
  4. HUMIRA [Suspect]
     Indication: CROHN'S DISEASE
     Route: 058
     Dates: start: 20100401
  5. METOPROLOL TARTRATE [Concomitant]
     Indication: BLOOD PRESSURE
  6. WARFARIN SODIUM [Concomitant]
     Indication: ANTICOAGULANT THERAPY
  7. AMLODIPINE [Concomitant]
     Indication: BLOOD PRESSURE
  8. FISH OIL [Concomitant]
     Indication: CROHN'S DISEASE
  9. POTASSIUM CITRATE [Concomitant]
     Indication: RENAL DISORDER
  10. NEXIUM [Concomitant]
     Indication: DYSPHAGIA

REACTIONS (2)
  - VOMITING [None]
  - NAUSEA [None]
